FAERS Safety Report 9424690 (Version 1)
Quarter: 2013Q3

REPORT INFORMATION
  Report Type: Spontaneous
  Country: US (occurrence: US)
  Receive Date: 20130729
  Receipt Date: 20130729
  Transmission Date: 20140515
  Serious: No
  Sender: FDA-Public Use
  Company Number: US-B.I. PHARMACEUTICALS,INC./RIDGEFIELD-2013-BI-19033BP

PATIENT
  Age: 72 Year
  Sex: Male
  Weight: 91 kg

DRUGS (13)
  1. COMBIVENT [Suspect]
     Indication: CHRONIC OBSTRUCTIVE PULMONARY DISEASE
     Dosage: STRENGTH: 18 MCG / 103 MCG; DAILY DOSE: 144 MCG/824 MCG
     Route: 055
     Dates: start: 201302
  2. METOPROLOL [Concomitant]
     Indication: HYPERTENSION
     Dosage: 50 MG
     Route: 048
  3. PRAVASTATIN [Concomitant]
     Indication: BLOOD CHOLESTEROL INCREASED
     Dosage: 20 MG
     Route: 048
  4. ASPIRIN [Concomitant]
     Dosage: 81 MG
     Route: 048
  5. WARFARIN [Concomitant]
     Indication: ATRIAL FIBRILLATION
     Dosage: 4 MG
     Route: 048
  6. WARFARIN [Concomitant]
     Dosage: 6 MG
     Route: 048
  7. FUROSEMIDE [Concomitant]
     Indication: CARDIAC FAILURE CONGESTIVE
     Dosage: 20 MG
     Route: 048
  8. FLUNISOIDE NASAL [Concomitant]
     Dosage: FORMULATION: NASAL SPRAY
     Route: 042
  9. FOLIC ACID [Concomitant]
     Dosage: 1 MG
     Route: 048
  10. LISINOPRIL [Concomitant]
     Indication: HYPERTENSION
     Dosage: 2.5 MG
     Route: 048
  11. DIGOXIN [Concomitant]
     Indication: ATRIAL FIBRILLATION
     Dosage: 0.125 MG
     Route: 048
  12. VITAMIN D3 [Concomitant]
     Dosage: 2000 MG
     Route: 048
  13. FISH OIL [Concomitant]
     Dosage: 2000 MG
     Route: 048

REACTIONS (1)
  - Retching [Recovered/Resolved]
